FAERS Safety Report 9732527 (Version 1)
Quarter: 2013Q4

REPORT INFORMATION
  Report Type: Spontaneous
  Country: US (occurrence: None)
  Receive Date: 20131203
  Receipt Date: 20131203
  Transmission Date: 20140711
  Serious: Yes (Death)
  Sender: FDA-Public Use
  Company Number: US-ALKEM-000353

PATIENT
  Age: 70 Year
  Sex: Male

DRUGS (2)
  1. GABAPENTIN (GABAPENTIN) [Suspect]
     Route: 048
  2. VENLAFAXINE (VENLAFAXINE) [Suspect]
     Route: 048

REACTIONS (1)
  - Completed suicide [None]
